FAERS Safety Report 5165109-6 (Version None)
Quarter: 2006Q4

REPORT INFORMATION
  Report Type: 
  Country: None (occurrence: None)
  Receive Date: 20061127
  Receipt Date: 20061116
  Transmission Date: 20070319
  Serious: Yes (Hospitalization)
  Sender: FDA-Public Use
  Company Number: 2006SP005933

PATIENT
  Age: 48 Year
  Sex: Male
  Weight: 88.5 kg

DRUGS (2)
  1. PEGATRON  (PEGYLATED  INTERFERON ALFA-2B W / RIBAVIRIN) [Suspect]
     Indication: HEPATITIS C
     Dosage: SEE IMAGE
     Route: 060
     Dates: start: 20060519
  2. SERTRALINE [Suspect]
     Indication: DRUG USE FOR UNKNOWN INDICATION
     Dosage: 50 MG;QD;PO
     Route: 048
     Dates: start: 20061106

REACTIONS (1)
  - ECZEMA [None]
